FAERS Safety Report 7332269-8 (Version None)
Quarter: 2011Q1

REPORT INFORMATION
  Report Type: 
  Country: None (occurrence: None)
  Receive Date: 20110304
  Receipt Date: 20110225
  Transmission Date: 20110831
  Serious: Yes (Other)
  Sender: FDA-Public Use
  Company Number: US-JNJFOC-20110300976

PATIENT
  Sex: Female
  Weight: 90.72 kg

DRUGS (1)
  1. LEVAQUIN [Suspect]
     Indication: TOE OPERATION
     Route: 048

REACTIONS (5)
  - TENDONITIS [None]
  - OSTEOMYELITIS [None]
  - TENDON DISORDER [None]
  - PAIN IN EXTREMITY [None]
  - CALCINOSIS [None]
